FAERS Safety Report 12332221 (Version 2)
Quarter: 2016Q4

REPORT INFORMATION
  Report Type: Spontaneous
  Country: US (occurrence: US)
  Receive Date: 20160504
  Receipt Date: 20161013
  Transmission Date: 20170207
  Serious: No
  Sender: FDA-Public Use
  Company Number: US-ROCHE-1645618

PATIENT
  Age: 65 Year
  Sex: Male

DRUGS (6)
  1. ESBRIET [Suspect]
     Active Substance: PIRFENIDONE
     Route: 048
     Dates: start: 20150310, end: 20150706
  2. ESBRIET [Suspect]
     Active Substance: PIRFENIDONE
     Indication: IDIOPATHIC PULMONARY FIBROSIS
     Dosage: STRENGTH: 267MG
     Route: 048
     Dates: start: 20141104
  3. ESBRIET [Suspect]
     Active Substance: PIRFENIDONE
     Dosage: 2 PILLS THREE TIMES A DAY
     Route: 048
  4. ESBRIET [Suspect]
     Active Substance: PIRFENIDONE
     Route: 048
     Dates: start: 20150707
  5. ESBRIET [Suspect]
     Active Substance: PIRFENIDONE
     Dosage: 3 PILLS
     Route: 048
  6. ESBRIET [Suspect]
     Active Substance: PIRFENIDONE
     Route: 048
     Dates: start: 20140830

REACTIONS (7)
  - Nausea [Recovered/Resolved]
  - Headache [Unknown]
  - Decreased appetite [Not Recovered/Not Resolved]
  - Rash [Not Recovered/Not Resolved]
  - Fatigue [Unknown]
  - Dry mouth [Unknown]
  - Weight decreased [Recovering/Resolving]

NARRATIVE: CASE EVENT DATE: 20150909
